FAERS Safety Report 5022440-2 (Version None)
Quarter: 2006Q2

REPORT INFORMATION
  Report Type: 
  Country: None (occurrence: None)
  Receive Date: 20060605
  Receipt Date: 20060519
  Transmission Date: 20061013
  Serious: Yes (Hospitalization)
  Sender: FDA-Public Use
  Company Number: DEU-2006-0002229

PATIENT
  Age: 25 Year
  Sex: Female
  Weight: 91 kg

DRUGS (2)
  1. OXY CR TAB 10 MG (OXYCODONE HYDROCHLORIDE) PROLONGED-RELEASE TABLET [Suspect]
     Indication: PAIN
     Dosage: 50 MG, DAILY, ORAL
     Route: 048
     Dates: start: 20060517, end: 20060518
  2. OXYCODON KAPSELN 5MG (OXYCODONE HYDROCHLORIDE) CAPSULE, HARD [Suspect]
     Indication: PAIN
     Dosage: 5 MG, PRN, ORAL
     Route: 048
     Dates: start: 20060509, end: 20060518

REACTIONS (3)
  - CONDITION AGGRAVATED [None]
  - HEADACHE [None]
  - HYPERHIDROSIS [None]
